FAERS Safety Report 8967672 (Version 1)
Quarter: 2012Q4

REPORT INFORMATION
  Report Type: Spontaneous
  Country: US (occurrence: None)
  Receive Date: 20121206
  Receipt Date: 20121206
  Transmission Date: 20130627
  Serious: Yes (Hospitalization)
  Sender: FDA-Public Use
  Company Number: 110609-000098

PATIENT
  Sex: Female

DRUGS (1)
  1. RECLAIM REVOLUTIONARY ANTI-AGING DAY CREAM SPF 15 [Suspect]
     Dosage: Twice daily dermal
     Dates: start: 20110404

REACTIONS (3)
  - Dyspnoea [None]
  - Blood immunoglobulin E increased [None]
  - Eosinophil count increased [None]
